FAERS Safety Report 8440463 (Version 3)
Quarter: 2013Q4

REPORT INFORMATION
  Report Type: Spontaneous
  Country: US (occurrence: US)
  Receive Date: 20120222
  Receipt Date: 20131031
  Transmission Date: 20140711
  Serious: Yes (Other)
  Sender: FDA-Public Use
  Company Number: US-009507513-2012SP008236

PATIENT
  Sex: Female

DRUGS (6)
  1. PEG-INTRON [Suspect]
     Indication: HEPATITIS C
     Dosage: UNK UNK, UNKNOWN
     Route: 065
     Dates: start: 20110824, end: 20111201
  2. PEG-INTRON [Suspect]
     Dosage: UNK UNK, UNKNOWN
     Route: 065
     Dates: start: 20111221, end: 20120406
  3. REBETOL [Suspect]
     Dosage: UNK UNK, UNKNOWN
     Route: 065
     Dates: start: 20110824, end: 20111201
  4. REBETOL [Suspect]
     Dosage: UNK UNK, UNKNOWN
     Route: 065
     Dates: start: 20111221, end: 20120413
  5. VICTRELIS [Suspect]
     Indication: HEPATITIS C
     Dosage: UNK UNK, UNKNOWN
     Route: 065
     Dates: start: 20110922, end: 20111201
  6. VICTRELIS [Suspect]
     Dosage: UNK
     Route: 065
     Dates: start: 20111221, end: 20120413

REACTIONS (17)
  - Dehydration [Unknown]
  - Fall [Unknown]
  - Back pain [Unknown]
  - Muscle twitching [Unknown]
  - Sensory loss [Unknown]
  - Infection [Unknown]
  - Musculoskeletal pain [Unknown]
  - Dry mouth [Unknown]
  - Chapped lips [Unknown]
  - Influenza [Unknown]
  - Rhinorrhoea [Unknown]
  - Ageusia [Unknown]
  - Thirst [Unknown]
  - Eating disorder [Unknown]
  - Sleep disorder [Unknown]
  - Underdose [Unknown]
  - Cough [Unknown]
